FAERS Safety Report 4975827-8 (Version None)
Quarter: 2006Q2

REPORT INFORMATION
  Report Type: 
  Country: None (occurrence: None)
  Receive Date: 20060411
  Receipt Date: 20060327
  Transmission Date: 20061013
  Serious: Yes (Other)
  Sender: FDA-Public Use
  Company Number: 06-000274

PATIENT
  Age: 71 Year
  Sex: Female

DRUGS (1)
  1. TACLONEX (CALCIPOTRIENE, BETHAMETHASONE DIPROPIONATE)OINTMENT [Suspect]
     Dosage: 0.005/0.064%

REACTIONS (1)
  - INTERNATIONAL NORMALISED RATIO INCREASED [None]
